FAERS Safety Report 14304094 (Version 1)
Quarter: 2017Q4

REPORT INFORMATION
  Report Type: Spontaneous
  Country: US (occurrence: US)
  Receive Date: 20171219
  Receipt Date: 20171219
  Transmission Date: 20180321
  Serious: Yes (Death, Other)
  Sender: FDA-Public Use
  Company Number: US-OTSUKA-DJ20121841

PATIENT
  Sex: Male

DRUGS (1)
  1. ABILIFY [Suspect]
     Active Substance: ARIPIPRAZOLE
     Indication: DEPRESSION
     Dosage: UNK
     Route: 065

REACTIONS (13)
  - Musculoskeletal pain [Fatal]
  - Blepharospasm [Fatal]
  - Weight increased [Fatal]
  - Death [Fatal]
  - Pyrexia [Fatal]
  - Hypertension [Fatal]
  - Fatigue [Fatal]
  - Heart rate irregular [Fatal]
  - Blood cholesterol increased [Fatal]
  - Diabetes mellitus [Fatal]
  - Cardiac disorder [Fatal]
  - Hypersomnia [Fatal]
  - Musculoskeletal stiffness [Fatal]
